FAERS Safety Report 7032277-0 (Version None)
Quarter: 2010Q4

REPORT INFORMATION
  Report Type: 
  Country: None (occurrence: None)
  Receive Date: 20101007
  Receipt Date: 20100517
  Transmission Date: 20110411
  Serious: Yes (Death)
  Sender: FDA-Public Use
  Company Number: IN-BRISTOL-MYERS SQUIBB COMPANY-15114069

PATIENT
  Age: 50 Year
  Sex: Male
  Weight: 50 kg

DRUGS (4)
  1. CETUXIMAB [Suspect]
     Indication: COLORECTAL CANCER
     Dosage: RECENT INF:27APR2010,NO OF ADMINISTRATION:8
     Route: 042
     Dates: start: 20091207, end: 20100427
  2. IRINOTECAN HCL [Suspect]
     Indication: COLORECTAL CANCER
     Route: 042
     Dates: start: 20091208, end: 20091208
  3. FLUOROURACIL [Suspect]
     Indication: COLORECTAL CANCER
     Dosage: IV BOLUS: 400MG/M2
     Route: 042
     Dates: start: 20091208, end: 20091208
  4. FOLINIC ACID [Suspect]
     Indication: COLORECTAL CANCER
     Route: 042
     Dates: start: 20091208, end: 20091208

REACTIONS (1)
  - RESPIRATORY DISTRESS [None]
